FAERS Safety Report 10775735 (Version 1)
Quarter: 2015Q1

REPORT INFORMATION
  Report Type: Report from Study
  Country: US (occurrence: US)
  Receive Date: 20150209
  Receipt Date: 20150209
  Transmission Date: 20150721
  Serious: Yes (Hospitalization)
  Sender: FDA-Public Use
  Company Number: US-SA-2015SA012406

PATIENT
  Age: 18 Year
  Sex: Male
  Weight: 92.6 kg

DRUGS (8)
  1. ASPARAGINASE [Suspect]
     Active Substance: ASPARAGINASE
     Indication: B PRECURSOR TYPE ACUTE LEUKAEMIA
     Route: 065
     Dates: start: 20140829, end: 20140906
  2. ETOPOSIDE. [Suspect]
     Active Substance: ETOPOSIDE
     Indication: B PRECURSOR TYPE ACUTE LEUKAEMIA
     Route: 065
     Dates: start: 20131129
  3. CLOFARABINE [Suspect]
     Active Substance: CLOFARABINE
     Indication: B PRECURSOR TYPE ACUTE LEUKAEMIA
     Route: 065
     Dates: start: 20131129
  4. CLOFARABINE [Suspect]
     Active Substance: CLOFARABINE
     Indication: B PRECURSOR TYPE ACUTE LEUKAEMIA
     Route: 065
     Dates: start: 20140815, end: 20140819
  5. CYCLOPHOSPHAMIDE. [Suspect]
     Active Substance: CYCLOPHOSPHAMIDE
     Indication: B PRECURSOR TYPE ACUTE LEUKAEMIA
     Route: 065
     Dates: start: 20140815, end: 20140819
  6. ASPARAGINASE [Suspect]
     Active Substance: ASPARAGINASE
     Indication: B PRECURSOR TYPE ACUTE LEUKAEMIA
     Route: 065
     Dates: start: 20131129
  7. CYCLOPHOSPHAMIDE. [Suspect]
     Active Substance: CYCLOPHOSPHAMIDE
     Indication: B PRECURSOR TYPE ACUTE LEUKAEMIA
     Route: 065
     Dates: start: 20131129
  8. ETOPOSIDE. [Suspect]
     Active Substance: ETOPOSIDE
     Indication: B PRECURSOR TYPE ACUTE LEUKAEMIA
     Route: 065
     Dates: start: 20140815, end: 20140819

REACTIONS (10)
  - Gastritis [Not Recovered/Not Resolved]
  - Hypertension [Recovered/Resolved]
  - Skin infection [Not Recovered/Not Resolved]
  - Infection [Recovered/Resolved]
  - Dyspnoea [Recovered/Resolved]
  - Platelet count decreased [Recovered/Resolved]
  - Sinusitis [Recovered/Resolved]
  - Pancreatitis [Recovered/Resolved]
  - Infection [Recovered/Resolved]
  - Colitis [Recovered/Resolved]

NARRATIVE: CASE EVENT DATE: 20140825
